FAERS Safety Report 18460915 (Version 2)
Quarter: 2020Q4

REPORT INFORMATION
  Report Type: Spontaneous
  Country: ES (occurrence: ES)
  Receive Date: 20201104
  Receipt Date: 20201120
  Transmission Date: 20210114
  Serious: Yes (Hospitalization)
  Sender: FDA-Public Use
  Company Number: ES-TEVA-2020-ES-1844184

PATIENT
  Age: 66 Year
  Sex: Female

DRUGS (4)
  1. DOXORUBICINA (202A) [Suspect]
     Active Substance: DOXORUBICIN HYDROCHLORIDE
     Route: 065
     Dates: start: 20200228
  2. CICLOFOSFAMIDA [Suspect]
     Active Substance: CYCLOPHOSPHAMIDE
     Route: 065
     Dates: start: 20200228
  3. VINCRISTINA (809A) [Suspect]
     Active Substance: VINCRISTINE SULFATE
     Route: 065
     Dates: start: 20200228
  4. RITUXIMAB (2814A) [Suspect]
     Active Substance: RITUXIMAB
     Route: 065
     Dates: start: 20200228

REACTIONS (1)
  - Febrile neutropenia [Recovered/Resolved]

NARRATIVE: CASE EVENT DATE: 20200720
